FAERS Safety Report 8520818 (Version 10)
Quarter: 2014Q1

REPORT INFORMATION
  Report Type: Spontaneous
  Country: US (occurrence: US)
  Receive Date: 20120419
  Receipt Date: 20140124
  Transmission Date: 20141002
  Serious: Yes (Hospitalization)
  Sender: FDA-Public Use
  Company Number: US-ASTRAZENECA-2011SE41454

PATIENT
  Age: 62 Year
  Sex: Female
  Weight: 83.9 kg

DRUGS (66)
  1. NEXIUM [Suspect]
     Indication: GASTROOESOPHAGEAL REFLUX DISEASE
     Route: 048
     Dates: start: 2001
  2. NEXIUM [Suspect]
     Indication: CHEST PAIN
     Route: 048
     Dates: start: 2001
  3. NEXIUM [Suspect]
     Indication: GASTROOESOPHAGEAL REFLUX DISEASE
     Dosage: 1/DAY, TOOK 2/DAY FROM FEBRUARY 2006 TO DECEMBER 2006
     Route: 048
     Dates: start: 20010401
  4. NEXIUM [Suspect]
     Indication: CHEST PAIN
     Dosage: 1/DAY, TOOK 2/DAY FROM FEBRUARY 2006 TO DECEMBER 2006
     Route: 048
     Dates: start: 20010401
  5. NEXIUM [Suspect]
     Indication: GASTROOESOPHAGEAL REFLUX DISEASE
     Route: 048
     Dates: start: 20011218
  6. NEXIUM [Suspect]
     Indication: CHEST PAIN
     Route: 048
     Dates: start: 20011218
  7. NEXIUM [Suspect]
     Indication: GASTROOESOPHAGEAL REFLUX DISEASE
     Route: 048
     Dates: start: 20030719
  8. NEXIUM [Suspect]
     Indication: CHEST PAIN
     Route: 048
     Dates: start: 20030719
  9. NEXIUM [Suspect]
     Indication: GASTROOESOPHAGEAL REFLUX DISEASE
     Route: 048
     Dates: start: 20100731
  10. NEXIUM [Suspect]
     Indication: CHEST PAIN
     Route: 048
     Dates: start: 20100731
  11. NEXIUM [Suspect]
     Indication: GASTROOESOPHAGEAL REFLUX DISEASE
     Route: 048
     Dates: start: 20010401
  12. NEXIUM [Suspect]
     Indication: CHEST PAIN
     Route: 048
     Dates: start: 20010401
  13. NEXIUM [Suspect]
     Indication: GASTROOESOPHAGEAL REFLUX DISEASE
     Route: 048
     Dates: start: 20011218
  14. NEXIUM [Suspect]
     Indication: CHEST PAIN
     Route: 048
     Dates: start: 20011218
  15. NEXIUM [Suspect]
     Indication: GASTROOESOPHAGEAL REFLUX DISEASE
     Dosage: ONE DAY EVERY DAY
     Route: 048
  16. NEXIUM [Suspect]
     Indication: CHEST PAIN
     Dosage: ONE DAY EVERY DAY
     Route: 048
  17. NEXIUM [Suspect]
     Indication: GASTROOESOPHAGEAL REFLUX DISEASE
     Dosage: TWICE A DAY
     Route: 048
     Dates: start: 200602, end: 200612
  18. NEXIUM [Suspect]
     Indication: CHEST PAIN
     Dosage: TWICE A DAY
     Route: 048
     Dates: start: 200602, end: 200612
  19. PRILOSEC [Suspect]
     Indication: CHEST PAIN
     Route: 048
  20. PRILOSEC [Suspect]
     Indication: GASTROOESOPHAGEAL REFLUX DISEASE
     Route: 048
  21. PRILOSEC [Suspect]
     Indication: CHEST PAIN
     Route: 048
     Dates: start: 20010324
  22. PRILOSEC [Suspect]
     Indication: GASTROOESOPHAGEAL REFLUX DISEASE
     Route: 048
     Dates: start: 20010324
  23. PRILOSEC [Suspect]
     Indication: CHEST PAIN
     Route: 048
     Dates: start: 20010724
  24. PRILOSEC [Suspect]
     Indication: GASTROOESOPHAGEAL REFLUX DISEASE
     Route: 048
     Dates: start: 20010724
  25. PRILOSEC [Suspect]
     Indication: CHEST PAIN
     Dosage: ONE DAY EVERY DAY
     Route: 048
  26. PRILOSEC [Suspect]
     Indication: GASTROOESOPHAGEAL REFLUX DISEASE
     Dosage: ONE DAY EVERY DAY
     Route: 048
  27. ATENOLOL [Concomitant]
     Indication: CARDIAC DISORDER
  28. ATENOLOL [Concomitant]
     Indication: CARDIAC DISORDER
     Dosage: 50MG TK ONE T PO D
     Route: 048
     Dates: start: 20061130
  29. ATENOLOL [Concomitant]
     Indication: CARDIAC DISORDER
     Dates: start: 20100731
  30. AVAPRO [Concomitant]
     Indication: CARDIAC DISORDER
     Dosage: 30 MG
  31. AVAPRO [Concomitant]
     Indication: CARDIAC DISORDER
     Dates: start: 20100731
  32. HYDROCHLOROTHIZIDE [Concomitant]
     Indication: CARDIAC DISORDER
  33. HYDROCHLOROTHIZIDE [Concomitant]
     Indication: CARDIAC DISORDER
     Dates: start: 20100731
  34. ZOCOR [Concomitant]
     Indication: BLOOD CHOLESTEROL
  35. ZOCOR [Concomitant]
     Indication: BLOOD CHOLESTEROL
     Dates: start: 20100731
  36. LEVOTHYROXINE [Concomitant]
     Indication: HYPOTHYROIDISM
     Dosage: 80 TO 88 MCG
  37. PLAVIX [Concomitant]
     Indication: CARDIAC DISORDER
     Dates: start: 2005
  38. PLAVIX [Concomitant]
     Indication: PERIPHERAL VASCULAR DISORDER
     Dates: start: 2005
  39. CELEXA [Concomitant]
     Indication: DEPRESSION
     Dates: start: 2005
  40. CELEXA [Concomitant]
     Indication: ANXIETY
     Dates: start: 2005
  41. CELEXA [Concomitant]
     Indication: DEPRESSION
     Dates: start: 20100731
  42. CELEXA [Concomitant]
     Indication: ANXIETY
     Dates: start: 20100731
  43. PREMARIN [Concomitant]
     Indication: HORMONE THERAPY
  44. CENESTIN [Concomitant]
     Indication: HORMONE THERAPY
  45. CENESTIN [Concomitant]
     Indication: HORMONE THERAPY
     Dates: end: 2006
  46. ASA [Concomitant]
     Indication: ANTICOAGULANT THERAPY
  47. ASA [Concomitant]
     Indication: ANTICOAGULANT THERAPY
     Route: 048
     Dates: start: 20030719
  48. NORVASC [Concomitant]
     Indication: BLOOD PRESSURE ABNORMAL
     Route: 048
     Dates: start: 20030719
  49. DIOVAN [Concomitant]
     Indication: BLOOD PRESSURE ABNORMAL
  50. PAXIL [Concomitant]
     Indication: DEPRESSION
     Dates: start: 20011218
  51. PAXIL [Concomitant]
     Indication: DEPRESSION
  52. FOSAMOX [Concomitant]
     Indication: OSTEOPOROSIS
  53. EFFEXOR XR [Concomitant]
     Indication: DEPRESSION
     Dates: start: 20011219
  54. EFFEXOR XR [Concomitant]
     Indication: DEPRESSION
     Dates: end: 2005
  55. EFFEXOR XR [Concomitant]
     Indication: DEPRESSION
     Route: 048
     Dates: start: 20030719
  56. NITROGLYCERIN [Concomitant]
     Indication: OESOPHAGEAL SPASM
  57. BENTYL [Concomitant]
  58. PHENERGAN [Concomitant]
  59. METAMUCIL [Concomitant]
  60. CEFZIL [Concomitant]
  61. PCE [Concomitant]
  62. UROMAR [Concomitant]
     Indication: BLADDER SPASM
  63. ESTROPIPATE [Concomitant]
     Dosage: 1.5MG (1.25 MG) ,TK ONE T PO QD
     Route: 048
     Dates: start: 20061130
  64. PEPCID [Concomitant]
     Dates: start: 20030719
  65. METOPROLOL [Concomitant]
     Route: 048
     Dates: start: 20030719
  66. DIOVAN HCT [Concomitant]
     Dosage: 80MG/12.5 MG QD PO
     Route: 048
     Dates: start: 20030719

REACTIONS (19)
  - Chest pain [Unknown]
  - Fall [Unknown]
  - Musculoskeletal discomfort [Unknown]
  - Limb discomfort [Unknown]
  - Osteoporosis [Unknown]
  - Bone density decreased [Unknown]
  - Abdominal pain [Unknown]
  - Abdominal pain lower [Unknown]
  - Influenza [Unknown]
  - Hypothyroidism [Unknown]
  - Depression [Unknown]
  - Neck pain [Unknown]
  - Peripheral vascular disorder [Unknown]
  - Osteopenia [Unknown]
  - Bone disorder [Unknown]
  - Cardiovascular disorder [Unknown]
  - Anxiety [Unknown]
  - Panic attack [Unknown]
  - Multiple fractures [Unknown]
